FAERS Safety Report 5822290-0 (Version None)
Quarter: 2008Q3

REPORT INFORMATION
  Report Type: 
  Country: None (occurrence: None)
  Receive Date: 20080725
  Receipt Date: 20080420
  Transmission Date: 20090109
  Serious: No
  Sender: FDA-Public Use
  Company Number: US-AMGEN-KDL275750

PATIENT
  Sex: Female

DRUGS (2)
  1. PROCRIT [Suspect]
     Indication: RENAL FAILURE CHRONIC
  2. LOVENOX [Concomitant]

REACTIONS (2)
  - FATIGUE [None]
  - FEMUR FRACTURE [None]
